FAERS Safety Report 14871652 (Version 1)
Quarter: 2018Q2

REPORT INFORMATION
  Report Type: Spontaneous
  Country: IN (occurrence: IN)
  Receive Date: 20180509
  Receipt Date: 20180509
  Transmission Date: 20180711
  Serious: Yes (Life-Threatening, Hospitalization)
  Sender: FDA-Public Use
  Company Number: IN-MYLANLABS-2018M1030911

PATIENT
  Age: 65 Year
  Sex: Male

DRUGS (3)
  1. LIDOCAINE. [Suspect]
     Active Substance: LIDOCAINE
     Dosage: 9ML OF LIDOCAINE 2% SOLUTION WAS INSTILLED USING ^SPRAY-AS-YOU-GO^ METHOD
  2. LIDOCAINE. [Suspect]
     Active Substance: LIDOCAINE
     Indication: LOCAL ANAESTHESIA
     Dosage: 5ML (100MG)
     Route: 045
  3. LIDOCAINE. [Suspect]
     Active Substance: LIDOCAINE
     Dosage: 5 SPRAYS OF 10% LIDOCAINE (50MG) TO OROPHARYNX

REACTIONS (3)
  - Circulatory collapse [Recovering/Resolving]
  - Ventricular tachycardia [Recovering/Resolving]
  - Toxicity to various agents [Recovering/Resolving]
